FAERS Safety Report 12105047 (Version 1)
Quarter: 2016Q1

REPORT INFORMATION
  Report Type: Spontaneous
  Country: DE (occurrence: DE)
  Receive Date: 20160223
  Receipt Date: 20160223
  Transmission Date: 20160526
  Serious: Yes (Other)
  Sender: FDA-Public Use
  Company Number: GXKR2016DE000967

PATIENT

DRUGS (1)
  1. ACETYLSALICYLIC ACID [Suspect]
     Active Substance: ASPIRIN
     Indication: PULMONARY EMBOLISM

REACTIONS (1)
  - Brain contusion [Unknown]

NARRATIVE: CASE EVENT DATE: 20160112
